FAERS Safety Report 20179244 (Version 1)
Quarter: 2021Q4

REPORT INFORMATION
  Report Type: Spontaneous
  Country: GB (occurrence: GB)
  Receive Date: 20211214
  Receipt Date: 20211214
  Transmission Date: 20220303
  Serious: Yes (Disabling)
  Sender: FDA-Public Use
  Company Number: None

PATIENT
  Age: 46 Year
  Sex: Female
  Weight: 119 kg

DRUGS (3)
  1. TERBINAFINE [Suspect]
     Active Substance: TERBINAFINE
     Indication: Fungal skin infection
     Dosage: 250 MILLIGRAM
     Route: 048
     Dates: start: 20210701, end: 20211130
  2. TERBINAFINE [Suspect]
     Active Substance: TERBINAFINE
     Indication: Fungal skin infection
     Dosage: UNK
  3. CARBAMAZEPINE [Concomitant]
     Active Substance: CARBAMAZEPINE
     Indication: Bipolar II disorder
     Dosage: UNK

REACTIONS (4)
  - Weight increased [Recovered/Resolved]
  - Depression [Recovered/Resolved]
  - Hypertension [Recovered/Resolved]
  - Major depression [Recovering/Resolving]

NARRATIVE: CASE EVENT DATE: 20211111
